FAERS Safety Report 9660941 (Version 1)
Quarter: 2013Q4

REPORT INFORMATION
  Report Type: Spontaneous
  Country: JP (occurrence: JP)
  Receive Date: 20131031
  Receipt Date: 20131031
  Transmission Date: 20140711
  Serious: Yes (Other)
  Sender: FDA-Public Use
  Company Number: JP-JHP PHARMACEUTICALS, LLC-JHP201300653

PATIENT
  Age: 79 Year
  Sex: Male

DRUGS (4)
  1. DANTRIUM [Suspect]
     Indication: MUSCLE TIGHTNESS
  2. MAGNESIUM SULFATE [Suspect]
     Indication: MUSCLE TIGHTNESS
  3. TETANUS IMMUNE GLOBULIN (HUMAN) [Concomitant]
  4. PENICILLIN G [Concomitant]

REACTIONS (5)
  - Off label use [Recovered/Resolved]
  - Dyspnoea [Unknown]
  - Tachypnoea [Unknown]
  - Respiration abnormal [Unknown]
  - Convulsion [Unknown]
